FAERS Safety Report 10282661 (Version 3)
Quarter: 2014Q3

REPORT INFORMATION
  Report Type: Report from Study
  Country: MX (occurrence: MX)
  Receive Date: 20140707
  Receipt Date: 20140722
  Transmission Date: 20150326
  Serious: Yes (Other)
  Sender: FDA-Public Use
  Company Number: PHHY2013MX120948

PATIENT
  Age: 21 Year
  Sex: Female

DRUGS (2)
  1. SEROQUEL [Concomitant]
     Active Substance: QUETIAPINE FUMARATE
     Dosage: 0.5 UKN, UNK
  2. TRILEPTAL [Suspect]
     Active Substance: OXCARBAZEPINE
     Indication: CONVULSION
     Dosage: 2 DF, BID
     Route: 048

REACTIONS (6)
  - Drug ineffective [Recovered/Resolved]
  - Bipolar disorder [Recovered/Resolved]
  - Nervous system disorder [Recovered/Resolved]
  - Convulsion [Recovered/Resolved]
  - Abnormal behaviour [Recovered/Resolved]
  - Headache [Recovered/Resolved]

NARRATIVE: CASE EVENT DATE: 20131012
